FAERS Safety Report 23503042 (Version 1)
Quarter: 2024Q1

REPORT INFORMATION
  Report Type: Spontaneous
  Country: US (occurrence: US)
  Receive Date: 20240208
  Receipt Date: 20240208
  Transmission Date: 20240410
  Serious: No
  Sender: FDA-Public Use
  Company Number: US-INTRA-CELLULAR THERAPIES, INC.-2023ICT01450

PATIENT

DRUGS (3)
  1. CAPLYTA [Suspect]
     Active Substance: LUMATEPERONE
     Dosage: UNK
  2. LITHIUM [Suspect]
     Active Substance: LITHIUM
     Dosage: UNK
  3. LITHIUM [Suspect]
     Active Substance: LITHIUM
     Dosage: INCREASED

REACTIONS (1)
  - Depression [Not Recovered/Not Resolved]
